FAERS Safety Report 18599839 (Version 2)
Quarter: 2021Q1

REPORT INFORMATION
  Report Type: Spontaneous
  Country: US (occurrence: US)
  Receive Date: 20201210
  Receipt Date: 20210113
  Transmission Date: 20210419
  Serious: Yes (Congenital Anomaly, Other)
  Sender: FDA-Public Use
  Company Number: NVSC2020US328146

PATIENT
  Sex: Female

DRUGS (1)
  1. OXCARBAZEPINE. [Suspect]
     Active Substance: OXCARBAZEPINE
     Indication: FOETAL EXPOSURE DURING PREGNANCY
     Dosage: MATERNAL DOSE: UNKNOWN
     Route: 064

REACTIONS (10)
  - Atrial septal defect [Unknown]
  - Dysphonia [Unknown]
  - Hypoglycaemia neonatal [Unknown]
  - Foetal exposure during pregnancy [Unknown]
  - Stridor [Unknown]
  - Polydactyly [Unknown]
  - Syndactyly [Unknown]
  - Hypotonia neonatal [Unknown]
  - Dandy-Walker syndrome [Unknown]
  - Congenital epiglottal anomaly [Unknown]
